FAERS Safety Report 5323547-2 (Version None)
Quarter: 2007Q2

REPORT INFORMATION
  Report Type: 
  Country: None (occurrence: None)
  Receive Date: 20070514
  Receipt Date: 20070507
  Transmission Date: 20071010
  Serious: Yes (Other)
  Sender: FDA-Public Use
  Company Number: CH-BRISTOL-MYERS SQUIBB COMPANY-13772470

PATIENT
  Age: 63 Year
  Sex: Male

DRUGS (15)
  1. ATAZANAVIR SULFATE [Suspect]
     Indication: HIV INFECTION
  2. TENOFOVIR [Suspect]
     Indication: HIV INFECTION
  3. RITONAVIR [Suspect]
     Indication: HIV INFECTION
  4. LAMIVUDINE [Concomitant]
  5. DIDANOSINE [Concomitant]
  6. LOPINAVIR [Concomitant]
  7. SALICYLIC ACID [Concomitant]
  8. CLOPIDOGREL BISULFATE [Concomitant]
  9. CALCIUM ACETATE [Concomitant]
  10. SPIRONOLACTONE [Concomitant]
  11. METOPROLOL SUCCINATE [Concomitant]
  12. EPOETIN BETA [Concomitant]
  13. INSULIN [Concomitant]
  14. ATORVASTATIN CALCIUM [Concomitant]
  15. ROSIGLITAZONE [Concomitant]

REACTIONS (3)
  - NEPHRITIS INTERSTITIAL [None]
  - RENAL FAILURE ACUTE [None]
  - RENAL TUBULAR NECROSIS [None]
